FAERS Safety Report 16078739 (Version 8)
Quarter: 2020Q2

REPORT INFORMATION
  Report Type: Other
  Country: CA (occurrence: CA)
  Receive Date: 20190315
  Receipt Date: 20200402
  Transmission Date: 20200713
  Serious: Yes (Hospitalization, Other)
  Sender: FDA-Public Use
  Company Number: CA-GLENMARK PHARMACEUTICALS-2019GMK040187

PATIENT

DRUGS (77)
  1. THIORIDAZINE [Suspect]
     Active Substance: THIORIDAZINE
     Dosage: UNK
     Route: 048
  2. ZIPRASIDONE. [Suspect]
     Active Substance: ZIPRASIDONE
     Dosage: UNK
     Route: 048
  3. CITALOPRAM [Suspect]
     Active Substance: CITALOPRAM HYDROBROMIDE
     Indication: SCHIZOPHRENIA
     Dosage: 80 MG, UNK
     Route: 065
  4. VALPROATE SODIUM. [Concomitant]
     Active Substance: VALPROATE SODIUM
     Indication: SCHIZOPHRENIA
     Dosage: UNK
     Route: 065
  5. SODIUM VALPROATE [Concomitant]
     Active Substance: VALPROATE SODIUM
     Dosage: 1250 MG, UNK
     Route: 065
  6. AMISULPRIDE [Suspect]
     Active Substance: AMISULPRIDE
     Indication: SCHIZOPHRENIA
     Dosage: 1200 MG, UNK
     Route: 065
  7. AMISULPRIDE [Suspect]
     Active Substance: AMISULPRIDE
     Dosage: 30 MG, UNK
     Route: 065
  8. HALOPERIDOL. [Suspect]
     Active Substance: HALOPERIDOL
     Indication: SCHIZOPHRENIA
     Dosage: 5 MG, UNK
     Route: 065
  9. HALOPERIDOL. [Suspect]
     Active Substance: HALOPERIDOL
     Dosage: 5 MG, UNK
     Route: 065
  10. LITHIUM CARBONATE. [Suspect]
     Active Substance: LITHIUM CARBONATE
     Dosage: 2400 MG, UNK
     Route: 065
  11. LOXAPINE SUCCINATE. [Suspect]
     Active Substance: LOXAPINE SUCCINATE
     Dosage: 200 MG, UNK
     Route: 065
  12. LOXAPINE SUCCINATE. [Suspect]
     Active Substance: LOXAPINE SUCCINATE
     Dosage: 50 MG, UNK
     Route: 065
  13. LOXAPINE SUCCINATE. [Suspect]
     Active Substance: LOXAPINE SUCCINATE
     Dosage: 50 MG, UNK
     Route: 065
  14. OLANZAPINE. [Suspect]
     Active Substance: OLANZAPINE
     Dosage: 15 MG, UNK
     Route: 065
  15. PERPHENAZINE. [Suspect]
     Active Substance: PERPHENAZINE
     Dosage: UNK
     Route: 065
  16. RISPERIDONE. [Suspect]
     Active Substance: RISPERIDONE
     Indication: SCHIZOPHRENIA
     Dosage: 3 MG, UNK
     Route: 065
  17. RISPERIDONE. [Suspect]
     Active Substance: RISPERIDONE
     Dosage: 3 MG, UNK
     Route: 065
  18. SAPHRIS [Suspect]
     Active Substance: ASENAPINE MALEATE
     Dosage: UNK
     Route: 065
  19. ZIPRASIDONE HYDROCHLORIDE. [Suspect]
     Active Substance: ZIPRASIDONE HYDROCHLORIDE
     Dosage: UNK
     Route: 048
  20. THIORIDAZINE [Suspect]
     Active Substance: THIORIDAZINE
     Indication: SCHIZOPHRENIA
     Dosage: UNK
     Route: 065
  21. SODIUM VALPROATE [Concomitant]
     Active Substance: VALPROATE SODIUM
     Dosage: UNK
     Route: 048
  22. SODIUM VALPROATE [Concomitant]
     Active Substance: VALPROATE SODIUM
     Dosage: UNK
     Route: 065
  23. CLOZAPINE. [Suspect]
     Active Substance: CLOZAPINE
     Indication: SCHIZOPHRENIA
     Dosage: 350 MG, UNK
     Route: 065
  24. CLOZAPINE. [Suspect]
     Active Substance: CLOZAPINE
     Dosage: 350 MG, OD (1 EVERY 1 DAYS)
     Route: 065
  25. FLUPENTIXOL [Suspect]
     Active Substance: FLUPENTIXOL
     Indication: SCHIZOPHRENIA
     Dosage: 6 MG, UNK
     Route: 065
  26. LOXAPINE SUCCINATE. [Suspect]
     Active Substance: LOXAPINE SUCCINATE
     Dosage: 50 MG, UNK
     Route: 065
  27. LOXAPINE SUCCINATE. [Suspect]
     Active Substance: LOXAPINE SUCCINATE
     Indication: SCHIZOPHRENIA
     Dosage: 200 MG, UNK
     Route: 065
  28. LOXAPINE SUCCINATE. [Suspect]
     Active Substance: LOXAPINE SUCCINATE
     Dosage: 75 MG, UNK
     Route: 065
  29. OLANZAPINE. [Suspect]
     Active Substance: OLANZAPINE
     Indication: SCHIZOPHRENIA
     Dosage: 40 MG, UNK
     Route: 065
  30. PERPHENAZINE. [Suspect]
     Active Substance: PERPHENAZINE
     Dosage: UNK
     Route: 065
  31. ABILIFY [Concomitant]
     Active Substance: ARIPIPRAZOLE
     Indication: PRODUCT USED FOR UNKNOWN INDICATION
     Dosage: UNK
     Route: 065
  32. ZIPRASIDONE MESILATE [Concomitant]
     Active Substance: ZIPRASIDONE
     Indication: PRODUCT USED FOR UNKNOWN INDICATION
     Dosage: UNK
     Route: 065
  33. SODIUM VALPROATE [Concomitant]
     Active Substance: VALPROATE SODIUM
     Indication: SCHIZOPHRENIA
     Dosage: 1000 MG, UNK
     Route: 065
  34. PERPHENAZINE. [Suspect]
     Active Substance: PERPHENAZINE
     Indication: SCHIZOPHRENIA
     Dosage: 32 MG, UNK
     Route: 065
  35. RISPERIDONE. [Suspect]
     Active Substance: RISPERIDONE
     Dosage: 8 MG, UNK
     Route: 065
  36. ZIPRASIDONE. [Suspect]
     Active Substance: ZIPRASIDONE
     Indication: SCHIZOPHRENIA
     Dosage: 100 MG, UNK
     Route: 065
  37. SAPHRIS [Suspect]
     Active Substance: ASENAPINE MALEATE
     Indication: SCHIZOPHRENIA
     Dosage: 100 MG, UNK
     Route: 065
  38. ZIPRASIDONE HYDROCHLORIDE. [Suspect]
     Active Substance: ZIPRASIDONE HYDROCHLORIDE
     Indication: SCHIZOPHRENIA
     Dosage: 100 MG, UNK
     Route: 048
  39. ZIPRASIDONE HYDROCHLORIDE. [Suspect]
     Active Substance: ZIPRASIDONE HYDROCHLORIDE
     Dosage: 100 MG, UNK
     Route: 065
  40. HALOPERIDOL DECANOATE. [Suspect]
     Active Substance: HALOPERIDOL DECANOATE
     Indication: SCHIZOPHRENIA
     Dosage: 5 MILLIGRAM (LIQUID INTRAMUSCULAR)
     Route: 030
  41. ARIPIPRAZOLE. [Suspect]
     Active Substance: ARIPIPRAZOLE
     Indication: SCHIZOPHRENIA
     Dosage: 30 MG, UNK
     Route: 065
  42. LOXAPINE. [Suspect]
     Active Substance: LOXAPINE
     Dosage: 75 MG, UNK
     Route: 065
  43. CLOMIPRAMINE [Suspect]
     Active Substance: CLOMIPRAMINE
     Indication: SCHIZOPHRENIA
     Dosage: 250 MG, UNK
     Route: 065
  44. RISPERIDONE. [Suspect]
     Active Substance: RISPERIDONE
     Indication: PSYCHOTIC DISORDER
     Dosage: 8 MG, OD (1 EVERY 1 DAY)
     Route: 065
  45. THIORIDAZINE [Suspect]
     Active Substance: THIORIDAZINE
     Dosage: UNK
     Route: 048
  46. SODIUM VALPROATE [Concomitant]
     Active Substance: VALPROATE SODIUM
     Dosage: 1200 MG, UNK
     Route: 065
  47. ASENAPINE MALEATE [Suspect]
     Active Substance: ASENAPINE MALEATE
     Indication: SCHIZOPHRENIA
     Dosage: UNK
     Route: 065
  48. LOXAPINE SUCCINATE. [Suspect]
     Active Substance: LOXAPINE SUCCINATE
     Dosage: 75 MG, UNK
     Route: 065
  49. ZIPRASIDONE. [Suspect]
     Active Substance: ZIPRASIDONE
     Indication: SCHIZOPHRENIA
     Dosage: 100 MG, UNK
     Route: 065
  50. LOXAPINE. [Suspect]
     Active Substance: LOXAPINE
     Dosage: 200 MG, UNK
     Route: 065
  51. QUETIAPINE. [Suspect]
     Active Substance: QUETIAPINE
     Indication: PRODUCT USED FOR UNKNOWN INDICATION
     Dosage: 600 MG, UNK
     Route: 065
  52. GABAPENTIN. [Suspect]
     Active Substance: GABAPENTIN
     Dosage: 600 MG, UNK
     Route: 065
  53. GABAPENTIN. [Suspect]
     Active Substance: GABAPENTIN
     Dosage: 1600 MG, UNK
     Route: 065
  54. FLUOXETINE HYDROCHLORIDE. [Suspect]
     Active Substance: FLUOXETINE HYDROCHLORIDE
     Indication: SCHIZOPHRENIA
     Dosage: 80 MG, UNK
     Route: 065
  55. HALOPERIDOL. [Suspect]
     Active Substance: HALOPERIDOL
     Dosage: 6 MG, UNK
     Route: 065
  56. LOXAPINE SUCCINATE. [Suspect]
     Active Substance: LOXAPINE SUCCINATE
     Indication: SCHIZOPHRENIA
     Dosage: 200 MG, UNK
     Route: 065
  57. PERPHENAZINE. [Suspect]
     Active Substance: PERPHENAZINE
     Dosage: 32 MG, UNK
     Route: 065
  58. TRIFLUOPERAZINE [Suspect]
     Active Substance: TRIFLUOPERAZINE HYDROCHLORIDE
     Indication: SCHIZOPHRENIA
     Dosage: 50 MG, UNK
     Route: 065
  59. FLUOXETINE [Suspect]
     Active Substance: FLUOXETINE HYDROCHLORIDE
     Indication: SCHIZOPHRENIA
     Dosage: 80 MG, UNK
     Route: 065
  60. CITALOPRAM [Concomitant]
     Active Substance: CITALOPRAM HYDROBROMIDE
     Indication: PRODUCT USED FOR UNKNOWN INDICATION
     Dosage: UNK
     Route: 065
  61. ABILIFY [Suspect]
     Active Substance: ARIPIPRAZOLE
     Indication: SCHIZOPHRENIA
     Dosage: 30 MG, UNK
     Route: 065
  62. CITALOPRAM [Suspect]
     Active Substance: CITALOPRAM HYDROBROMIDE
     Indication: SCHIZOPHRENIA
     Dosage: 80 MG, UNK
     Route: 065
  63. LITHIUM CARBONATE. [Suspect]
     Active Substance: LITHIUM CARBONATE
     Indication: AFFECTIVE DISORDER
     Dosage: 1800 MG, UNK
     Route: 065
  64. LOXAPINE SUCCINATE. [Suspect]
     Active Substance: LOXAPINE SUCCINATE
     Dosage: 75 MG, UNK
     Route: 065
  65. OLANZAPINE. [Suspect]
     Active Substance: OLANZAPINE
     Dosage: 40 MG, OD (1 EVERY 1 DAY)
     Route: 065
  66. RISPERIDONE. [Suspect]
     Active Substance: RISPERIDONE
     Dosage: 4 MG, UNK
     Route: 065
  67. PROZAC [Suspect]
     Active Substance: FLUOXETINE HYDROCHLORIDE
     Indication: SCHIZOPHRENIA
     Dosage: 80 MG, UNK
     Route: 065
  68. LOXAPINE. [Suspect]
     Active Substance: LOXAPINE
     Indication: SCHIZOPHRENIA
     Dosage: 50 MG, UNK
     Route: 065
  69. GABAPENTIN. [Suspect]
     Active Substance: GABAPENTIN
     Indication: SCHIZOPHRENIA
     Dosage: 1800 MG, UNK
     Route: 065
  70. CITALOPRAM HYDROBROMIDE. [Suspect]
     Active Substance: CITALOPRAM HYDROBROMIDE
     Indication: SCHIZOPHRENIA
     Dosage: 80 MG, UNK
     Route: 065
  71. LITHIUM CARBONATE. [Suspect]
     Active Substance: LITHIUM CARBONATE
     Indication: SCHIZOPHRENIA
     Dosage: 1050 MG, UNK
     Route: 065
  72. OLANZAPINE. [Suspect]
     Active Substance: OLANZAPINE
     Indication: PSYCHOTIC DISORDER
     Dosage: 20 MG, UNK
     Route: 065
  73. PERPHENAZINE. [Suspect]
     Active Substance: PERPHENAZINE
     Indication: SCHIZOPHRENIA
     Dosage: UNK
     Route: 065
  74. PERPHENAZINE. [Suspect]
     Active Substance: PERPHENAZINE
     Dosage: 32 MG, UNK
     Route: 065
  75. PERPHENAZINE. [Suspect]
     Active Substance: PERPHENAZINE
     Dosage: UNK
     Route: 065
  76. QUETIAPINE FUMARATE. [Suspect]
     Active Substance: QUETIAPINE FUMARATE
     Indication: SCHIZOPHRENIA
     Dosage: 600 MG, UNK
     Route: 065
  77. THIORIDAZINE [Suspect]
     Active Substance: THIORIDAZINE
     Indication: SCHIZOPHRENIA
     Dosage: UNK
     Route: 065

REACTIONS (19)
  - Prescribed overdose [Unknown]
  - Akathisia [Unknown]
  - Obsessive-compulsive disorder [Unknown]
  - Leukaemia [Unknown]
  - Hypertension [Unknown]
  - Leukopenia [Unknown]
  - Suicide attempt [Unknown]
  - Therapeutic product effect incomplete [Unknown]
  - Drug ineffective [Unknown]
  - Toxicity to various agents [Unknown]
  - Increased appetite [Unknown]
  - Weight increased [Unknown]
  - Therapeutic product effect variable [Unknown]
  - Obesity [Unknown]
  - Disinhibition [Unknown]
  - Euphoric mood [Unknown]
  - Product use in unapproved indication [Unknown]
  - Antipsychotic drug level below therapeutic [Unknown]
  - Dyslipidaemia [Unknown]
